FAERS Safety Report 5357770-8 (Version None)
Quarter: 2007Q2

REPORT INFORMATION
  Report Type: 
  Country: None (occurrence: None)
  Receive Date: 20070614
  Receipt Date: 20070604
  Transmission Date: 20071010
  Serious: Yes (Hospitalization)
  Sender: FDA-Public Use
  Company Number: BR-ABBOTT-07P-020-0369600-00

PATIENT
  Sex: Female
  Weight: 98 kg

DRUGS (7)
  1. HUMIRA [Suspect]
     Indication: RHEUMATOID ARTHRITIS
     Route: 058
     Dates: start: 20050301, end: 20070402
  2. HUMIRA [Suspect]
     Dates: start: 20070530
  3. METHOTREXATE [Concomitant]
     Indication: RHEUMATOID ARTHRITIS
     Route: 048
     Dates: start: 20030101
  4. ARTROLIVE [Concomitant]
     Indication: CHONDROPATHY
     Route: 048
     Dates: start: 20070201
  5. WARFARIN SODIUM [Concomitant]
     Indication: COAGULOPATHY
     Route: 048
     Dates: start: 20050101
  6. MELOXICAN [Concomitant]
     Indication: DRUG USE FOR UNKNOWN INDICATION
  7. UNSPECIFIED CORTICOID [Concomitant]
     Indication: RHEUMATOID ARTHRITIS
     Dates: start: 19980101, end: 20070201

REACTIONS (4)
  - BLISTER [None]
  - INFLAMMATION [None]
  - PAIN [None]
  - PHARYNGEAL INFLAMMATION [None]
